FAERS Safety Report 8812900 (Version 1)
Quarter: 2012Q4

REPORT INFORMATION
  Report Type: 
  Country: BR (occurrence: BR)
  Receive Date: 20120927
  Receipt Date: 20120927
  Transmission Date: 20130627
  Serious: Yes (Other)
  Sender: FDA-Public Use
  Company Number: BR-ROCHE-1138375

PATIENT
  Age: 48 Year
  Sex: Female

DRUGS (1)
  1. XOLAIR [Suspect]
     Indication: PRODUCT USED FOR UNKNOWN INDICATION
     Route: 058
     Dates: start: 20110504

REACTIONS (3)
  - Klebsiella infection [Recovering/Resolving]
  - Serratia infection [Recovering/Resolving]
  - Staphylococcus test positive [Recovering/Resolving]
